FAERS Safety Report 19045898 (Version 1)
Quarter: 2021Q1

REPORT INFORMATION
  Report Type: Spontaneous
  Country: US (occurrence: US)
  Receive Date: 20210323
  Receipt Date: 20210323
  Transmission Date: 20210420
  Serious: Yes (Life-Threatening, Hospitalization, Disabling)
  Sender: FDA-Public Use
  Company Number: None

PATIENT
  Age: 71 Year
  Sex: Male
  Weight: 77.85 kg

DRUGS (10)
  1. LANTUS [Concomitant]
     Active Substance: INSULIN GLARGINE
     Dates: start: 20200206
  2. FENOFIBRATE. [Concomitant]
     Active Substance: FENOFIBRATE
     Dates: start: 20110412
  3. OXYCODONE [Concomitant]
     Active Substance: OXYCODONE
     Dates: start: 20210223
  4. AMLODIPINE [Concomitant]
     Active Substance: AMLODIPINE BESYLATE
     Dates: start: 20190822
  5. SELPERCATINIB. [Suspect]
     Active Substance: SELPERCATINIB
     Indication: MEDULLARY THYROID CANCER
     Route: 048
     Dates: start: 20210318, end: 20210320
  6. SELPERCATINIB. [Suspect]
     Active Substance: SELPERCATINIB
     Indication: THYROID CANCER METASTATIC
     Route: 048
     Dates: start: 20210318, end: 20210320
  7. GEMFIBROZIL. [Concomitant]
     Active Substance: GEMFIBROZIL
     Dates: start: 20191203
  8. LOSARTAN. [Concomitant]
     Active Substance: LOSARTAN
     Dates: start: 20200311
  9. METFORMIN [Concomitant]
     Active Substance: METFORMIN HYDROCHLORIDE
     Dates: start: 20210219
  10. PRAVASTATIN. [Concomitant]
     Active Substance: PRAVASTATIN
     Dates: start: 20190618

REACTIONS (11)
  - Somnolence [None]
  - Malaise [None]
  - Intraventricular haemorrhage [None]
  - General physical health deterioration [None]
  - Hypotonia [None]
  - Energy increased [None]
  - Fall [None]
  - Brain stem haemorrhage [None]
  - Fatigue [None]
  - Miosis [None]
  - Hyporesponsive to stimuli [None]

NARRATIVE: CASE EVENT DATE: 20210320
